FAERS Safety Report 7804115-7 (Version None)
Quarter: 2011Q4

REPORT INFORMATION
  Report Type: 
  Country: None (occurrence: None)
  Receive Date: 20111010
  Receipt Date: 20111005
  Transmission Date: 20120403
  Serious: Yes (Death)
  Sender: FDA-Public Use
  Company Number: CA-ASTELLAS-2011US006521

PATIENT
  Sex: Male

DRUGS (3)
  1. ERLOTINIB HYDROCHLORIDE [Suspect]
     Indication: BRONCHIAL CARCINOMA
     Dosage: 150 MG, UID/QD
     Route: 048
     Dates: end: 20110807
  2. OXYGEN [Concomitant]
     Indication: PRODUCT USED FOR UNKNOWN INDICATION
     Dosage: UNK
     Route: 065
  3. FRAGMIN [Concomitant]
     Indication: PRODUCT USED FOR UNKNOWN INDICATION
     Dosage: UNK
     Route: 065

REACTIONS (1)
  - DEATH [None]
